FAERS Safety Report 7936882-6 (Version None)
Quarter: 2011Q4

REPORT INFORMATION
  Report Type: 
  Country: None (occurrence: None)
  Receive Date: 20111123
  Receipt Date: 20111123
  Transmission Date: 20120403
  Serious: Yes (Hospitalization, Other)
  Sender: FDA-Public Use
  Company Number: None

PATIENT
  Age: 46 Year
  Sex: Female
  Weight: 47.627 kg

DRUGS (1)
  1. HYDROCODONE BITARTRATE AND ACETAMINOPHEN [Suspect]
     Indication: PAIN
     Dosage: 1TAB EVERY 4HRS
     Route: 048
     Dates: start: 20111121, end: 20111121

REACTIONS (7)
  - TACHYCARDIA [None]
  - DRY THROAT [None]
  - DEHYDRATION [None]
  - ASTHENIA [None]
  - TREMOR [None]
  - NERVOUSNESS [None]
  - DRY MOUTH [None]
